FAERS Safety Report 8281457-5 (Version None)
Quarter: 2012Q1

REPORT INFORMATION
  Report Type: 
  Country: None (occurrence: None)
  Receive Date: 20120316
  Receipt Date: 20101012
  Transmission Date: 20120608
  Serious: Yes (Other)
  Sender: FDA-Public Use
  Company Number: PHHY2010US68308

PATIENT
  Age: 50 Year
  Sex: Female

DRUGS (1)
  1. TEKTURNA [Suspect]
     Dosage: 150 MG OR 300 MG
     Dates: start: 20100101, end: 20101001

REACTIONS (1)
  - ANGIOEDEMA [None]
